FAERS Safety Report 17527028 (Version 1)
Quarter: 2020Q1

REPORT INFORMATION
  Report Type: Spontaneous
  Country: CA (occurrence: CA)
  Receive Date: 20200311
  Receipt Date: 20200311
  Transmission Date: 20200409
  Serious: Yes (Life-Threatening, Hospitalization, Other)
  Sender: FDA-Public Use
  Company Number: CA-ICU MEDICAL, INC.-ICU2020CA00006

PATIENT

DRUGS (23)
  1. L-ASPARTIC ACID [Suspect]
     Active Substance: ASPARTIC ACID
     Indication: OVERDOSE
     Route: 065
  2. APO-VERAP SR [Suspect]
     Active Substance: VERAPAMIL HYDROCHLORIDE
     Indication: PRODUCT USED FOR UNKNOWN INDICATION
     Dosage: 19.2 GRAM
     Route: 048
  3. THREONINE [Suspect]
     Active Substance: THREONINE
     Indication: OVERDOSE
     Route: 065
  4. CALCIUM CARBONATE. [Suspect]
     Active Substance: CALCIUM CARBONATE
     Indication: OVERDOSE
     Route: 065
  5. NOREPINEPHRINE. [Suspect]
     Active Substance: NOREPINEPHRINE
     Indication: OVERDOSE
     Route: 065
  6. PHENYLALANINE [Suspect]
     Active Substance: PHENYLALANINE
     Indication: OVERDOSE
     Route: 065
  7. VALINE [Suspect]
     Active Substance: VALINE
     Indication: OVERDOSE
     Route: 065
  8. GLUCAGON. [Suspect]
     Active Substance: GLUCAGON
     Indication: OVERDOSE
     Dosage: 5 MILLIGRAM
  9. GLUTAMIC ACID [Suspect]
     Active Substance: GLUTAMIC ACID
     Indication: OVERDOSE
     Route: 042
  10. HISTIDINE [Suspect]
     Active Substance: HISTIDINE
     Indication: OVERDOSE
     Route: 065
  11. LYSINE [Suspect]
     Active Substance: LYSINE
     Indication: OVERDOSE
     Route: 065
  12. MAGNESIUM CHLORIDE ANHYDROUS [Suspect]
     Active Substance: MAGNESIUM CHLORIDE ANHYDROUS
     Indication: OVERDOSE
     Route: 065
  13. GLUCOSE [Suspect]
     Active Substance: DEXTROSE
     Indication: OVERDOSE
     Route: 065
  14. POTASSIUM CHLORIDE. [Suspect]
     Active Substance: POTASSIUM CHLORIDE
     Indication: OVERDOSE
     Route: 065
  15. DIPHENHYDRAMINE. [Suspect]
     Active Substance: DIPHENHYDRAMINE
     Indication: OVERDOSE
     Dosage: 200 MILLIGRAM
     Route: 048
  16. EPINEPHRINE. [Suspect]
     Active Substance: EPINEPHRINE
     Indication: OVERDOSE
     Route: 065
  17. GLYCINE. [Suspect]
     Active Substance: GLYCINE
     Indication: OVERDOSE
     Route: 065
  18. PROLINE [Suspect]
     Active Substance: PROLINE
     Indication: OVERDOSE
     Route: 065
  19. VASOPRESSIN. [Suspect]
     Active Substance: VASOPRESSIN
     Indication: OVERDOSE
     Route: 065
  20. 1.5% GLYCINE IRRIGATION USP (3000 ML) [Suspect]
     Active Substance: GLYCINE
     Indication: OVERDOSE
     Route: 065
  21. ACTIVATED CHARCOAL. [Suspect]
     Active Substance: ACTIVATED CHARCOAL
     Indication: OVERDOSE
     Route: 065
  22. ATROPINE SULFATE. [Suspect]
     Active Substance: ATROPINE SULFATE
     Indication: OVERDOSE
     Route: 065
  23. METHYLENE BLUE. [Suspect]
     Active Substance: METHYLENE BLUE
     Indication: OVERDOSE
     Dosage: 80 MILLIGRAM
     Route: 065

REACTIONS (14)
  - Lactic acidosis [Recovered/Resolved]
  - Overdose [Recovered/Resolved]
  - Hypotension [Recovered/Resolved]
  - Cardiac arrest [Recovered/Resolved]
  - Compartment syndrome [Recovered/Resolved]
  - Hyperkalaemia [Recovered/Resolved]
  - Rhabdomyolysis [Recovered/Resolved]
  - Vasoplegia syndrome [Recovered/Resolved]
  - Pulse absent [Recovered/Resolved]
  - Cardiogenic shock [Recovered/Resolved]
  - Bradycardia [Recovered/Resolved]
  - Condition aggravated [Recovered/Resolved]
  - Ileus [Recovered/Resolved]
  - Coma scale abnormal [Recovered/Resolved]
